FAERS Safety Report 15196602 (Version 6)
Quarter: 2020Q1

REPORT INFORMATION
  Report Type: Report from Study
  Country: None (occurrence: FR)
  Receive Date: 20180725
  Receipt Date: 20200225
  Transmission Date: 20200409
  Serious: Yes (Hospitalization, Other)
  Sender: FDA-Public Use
  Company Number: FR-ABBVIE-18K-056-2324079-00

PATIENT
  Age: 58 Year
  Sex: Female

DRUGS (2)
  1. DUODOPA [Suspect]
     Active Substance: CARBIDOPA\LEVODOPA
     Indication: PARKINSON^S DISEASE
     Route: 050
     Dates: start: 20180326, end: 2018
  2. DUODOPA [Suspect]
     Active Substance: CARBIDOPA\LEVODOPA
     Route: 050
     Dates: start: 20180401

REACTIONS (8)
  - Dysphagia [Not Recovered/Not Resolved]
  - Device issue [Unknown]
  - Weight decreased [Not Recovered/Not Resolved]
  - Feeding disorder [Unknown]
  - Incorrect route of product administration [Unknown]
  - Dehydration [Unknown]
  - Incorrect route of product administration [Unknown]
  - Device occlusion [Unknown]

NARRATIVE: CASE EVENT DATE: 201804
